FAERS Safety Report 13370969 (Version 3)
Quarter: 2017Q2

REPORT INFORMATION
  Report Type: Spontaneous
  Country: PT (occurrence: PT)
  Receive Date: 20170324
  Receipt Date: 20170616
  Transmission Date: 20170830
  Serious: Yes (Other)
  Sender: FDA-Public Use
  Company Number: PHHY2017PT038607

PATIENT
  Age: 42 Year
  Sex: Female

DRUGS (1)
  1. GILENYA [Suspect]
     Active Substance: FINGOLIMOD HYDROCHLORIDE
     Indication: MULTIPLE SCLEROSIS
     Dosage: 0.5 MG, QD
     Route: 048
     Dates: start: 20130131

REACTIONS (4)
  - Drug ineffective [Not Recovered/Not Resolved]
  - Macular degeneration [Recovered/Resolved with Sequelae]
  - Retinal disorder [Recovered/Resolved with Sequelae]
  - Photophobia [Recovered/Resolved with Sequelae]

NARRATIVE: CASE EVENT DATE: 20160407
